FAERS Safety Report 7271753-2 (Version None)
Quarter: 2011Q1

REPORT INFORMATION
  Report Type: 
  Country: None (occurrence: None)
  Receive Date: 20110203
  Receipt Date: 20110127
  Transmission Date: 20110831
  Serious: Yes (Death)
  Sender: FDA-Public Use
  Company Number: FR-ASTELLAS-2010EU006552

PATIENT
  Sex: Female
  Weight: 70 kg

DRUGS (3)
  1. RAPAMYCINE [Concomitant]
     Dosage: UNK
     Route: 065
  2. CELLCEPT [Concomitant]
     Dosage: 500 MG, BID
     Route: 065
  3. PROGRAF [Suspect]
     Dosage: 7 MG, UNKNOWN/D
     Route: 042
     Dates: start: 20101202

REACTIONS (2)
  - MULTI-ORGAN FAILURE [None]
  - DRUG LEVEL INCREASED [None]
